FAERS Safety Report 7562665-5 (Version None)
Quarter: 2011Q2

REPORT INFORMATION
  Report Type: 
  Country: None (occurrence: None)
  Receive Date: 20110621
  Receipt Date: 20110621
  Transmission Date: 20111010
  Serious: No
  Sender: FDA-Public Use
  Company Number: None

PATIENT
  Age: 78 Year
  Sex: Male
  Weight: 74.8435 kg

DRUGS (1)
  1. LATANOPROST [Suspect]
     Indication: OPEN ANGLE GLAUCOMA
     Dosage: 1 GTT QHS OPHTHALMIC
     Route: 047
     Dates: start: 20110527, end: 20110613

REACTIONS (3)
  - EYE IRRITATION [None]
  - CONJUNCTIVAL HAEMORRHAGE [None]
  - PRODUCT SUBSTITUTION ISSUE [None]
